FAERS Safety Report 17520277 (Version 3)
Quarter: 2020Q4

REPORT INFORMATION
  Report Type: Report from Study
  Country: US (occurrence: US)
  Receive Date: 20200309
  Receipt Date: 20201230
  Transmission Date: 20210113
  Serious: No
  Sender: FDA-Public Use
  Company Number: NVSC2020US066671

PATIENT
  Age: 50 Year
  Sex: Female

DRUGS (1)
  1. ENTRESTO [Suspect]
     Active Substance: SACUBITRIL\VALSARTAN
     Indication: CARDIAC FAILURE CHRONIC
     Dosage: 0.5 DF, BID (97/103 MG)
     Route: 048
     Dates: start: 201910

REACTIONS (3)
  - Wrong technique in product usage process [Unknown]
  - Product prescribing error [Unknown]
  - Fatigue [Unknown]

NARRATIVE: CASE EVENT DATE: 201910
